FAERS Safety Report 7313050-2 (Version None)
Quarter: 2011Q1

REPORT INFORMATION
  Report Type: 
  Country: None (occurrence: None)
  Receive Date: 20110225
  Receipt Date: 20110216
  Transmission Date: 20110831
  Serious: Yes (Other)
  Sender: FDA-Public Use
  Company Number: US-BIOGENIDEC-2011BI006135

PATIENT
  Age: 50 Year
  Sex: Female

DRUGS (2)
  1. PRESCRIPTION MIGRAINE MEDICATION [NOS] [Concomitant]
  2. AVONEX [Suspect]
     Indication: MULTIPLE SCLEROSIS
     Route: 030
     Dates: start: 20100622

REACTIONS (1)
  - ANAPHYLACTIC SHOCK [None]
